FAERS Safety Report 18298885 (Version 7)
Quarter: 2022Q2

REPORT INFORMATION
  Report Type: Spontaneous
  Country: US (occurrence: US)
  Receive Date: 20200922
  Receipt Date: 20220516
  Transmission Date: 20220721
  Serious: Yes (Hospitalization, Other)
  Sender: FDA-Public Use
  Company Number: US-GILEAD-2020-0495603

PATIENT
  Age: 58 Year
  Sex: Male
  Weight: 78.458 kg

DRUGS (87)
  1. VIREAD [Suspect]
     Active Substance: TENOFOVIR DISOPROXIL FUMARATE
     Indication: HIV infection
     Route: 065
  2. TRUVADA [Suspect]
     Active Substance: EMTRICITABINE\TENOFOVIR DISOPROXIL FUMARATE
     Indication: HIV infection
     Route: 065
  3. ATRIPLA [Suspect]
     Active Substance: EFAVIRENZ\EMTRICITABINE\TENOFOVIR DISOPROXIL FUMARATE
     Indication: HIV infection
     Dosage: UNK
     Route: 048
     Dates: start: 2008, end: 201601
  4. ATRIPLA [Suspect]
     Active Substance: EFAVIRENZ\EMTRICITABINE\TENOFOVIR DISOPROXIL FUMARATE
     Dosage: UNK
     Route: 048
     Dates: start: 2008, end: 20161005
  5. ATRIPLA [Suspect]
     Active Substance: EFAVIRENZ\EMTRICITABINE\TENOFOVIR DISOPROXIL FUMARATE
     Dosage: UNK
     Route: 048
     Dates: start: 2008, end: 201406
  6. ATRIPLA [Suspect]
     Active Substance: EFAVIRENZ\EMTRICITABINE\TENOFOVIR DISOPROXIL FUMARATE
     Dosage: UNK
     Route: 065
     Dates: start: 20150615, end: 20170120
  7. MAGNESIUM OXIDE\SODIUM BICARBONATE [Concomitant]
     Active Substance: MAGNESIUM OXIDE\SODIUM BICARBONATE
  8. ASPIRIN [Concomitant]
     Active Substance: ASPIRIN
  9. ATORVASTATIN CALCIUM [Concomitant]
     Active Substance: ATORVASTATIN CALCIUM
  10. PREDNISONE [Concomitant]
     Active Substance: PREDNISONE
  11. ISENTRESS [Concomitant]
     Active Substance: RALTEGRAVIR POTASSIUM
  12. NORVIR [Concomitant]
     Active Substance: RITONAVIR
  13. PREZISTA [Concomitant]
     Active Substance: DARUNAVIR ETHANOLATE
  14. TIVICAY [Concomitant]
     Active Substance: DOLUTEGRAVIR SODIUM
  15. AMLODIPINE BESYLATE [Concomitant]
     Active Substance: AMLODIPINE BESYLATE
  16. CARVEDILOL [Concomitant]
     Active Substance: CARVEDILOL
  17. GEMFIBROZIL [Concomitant]
     Active Substance: GEMFIBROZIL
  18. HYDRALAZINE [Concomitant]
     Active Substance: HYDRALAZINE HYDROCHLORIDE
  19. LOKELMA [Concomitant]
     Active Substance: SODIUM ZIRCONIUM CYCLOSILICATE
  20. METOPROLOL TARTRATE [Concomitant]
     Active Substance: METOPROLOL TARTRATE
  21. SODIUM BICARBONATE [Concomitant]
     Active Substance: SODIUM BICARBONATE
  22. TYLENOL [Concomitant]
     Active Substance: ACETAMINOPHEN
  23. AMOXICILLIN [Concomitant]
     Active Substance: AMOXICILLIN
  24. COZAAR [Concomitant]
     Active Substance: LOSARTAN POTASSIUM
  25. BENICAR [Concomitant]
     Active Substance: OLMESARTAN MEDOXOMIL
  26. AVAPRO [Concomitant]
     Active Substance: IRBESARTAN
  27. DIOVAN [Concomitant]
     Active Substance: VALSARTAN
  28. TIMOLOL MALEATE [Concomitant]
     Active Substance: TIMOLOL MALEATE
  29. VASOTEC [Concomitant]
     Active Substance: ENALAPRIL MALEATE
  30. ZESTRIL [Concomitant]
     Active Substance: LISINOPRIL
  31. ACCUPRIL [Concomitant]
     Active Substance: QUINAPRIL HYDROCHLORIDE
  32. XANAX [Concomitant]
     Active Substance: ALPRAZOLAM
  33. VALIUM [Concomitant]
     Active Substance: DIAZEPAM
  34. ATIVAN [Concomitant]
     Active Substance: LORAZEPAM
  35. CORTICOSTEROID NOS [Concomitant]
     Active Substance: CORTICOSTEROID NOS
  36. HEPARIN [Concomitant]
     Active Substance: HEPARIN SODIUM
  37. LASIX [Concomitant]
     Active Substance: FUROSEMIDE
  38. LEVOTHYROXINE [Concomitant]
     Active Substance: LEVOTHYROXINE
  39. LEVOFLOXACIN [Concomitant]
     Active Substance: LEVOFLOXACIN
  40. NAPROXEN [Concomitant]
     Active Substance: NAPROXEN
  41. IBUPROFEN [Concomitant]
     Active Substance: IBUPROFEN
  42. DICLOFENAC [Concomitant]
     Active Substance: DICLOFENAC
  43. OMEPRAZOLE [Concomitant]
     Active Substance: OMEPRAZOLE
  44. PANTOPRAZOLE [Concomitant]
     Active Substance: PANTOPRAZOLE
  45. PRAVASTATIN [Concomitant]
     Active Substance: PRAVASTATIN
  46. TETRACYCLINE [Concomitant]
     Active Substance: TETRACYCLINE
  47. LEVAQUIN [Concomitant]
     Active Substance: LEVOFLOXACIN
  48. CLONIDINE [Concomitant]
     Active Substance: CLONIDINE
  49. LISINOPRIL [Concomitant]
     Active Substance: LISINOPRIL
  50. MOTRIN [Concomitant]
     Active Substance: IBUPROFEN
  51. HYDROCHLOROTHIAZIDE [Concomitant]
     Active Substance: HYDROCHLOROTHIAZIDE
  52. METFORMIN [Concomitant]
     Active Substance: METFORMIN HYDROCHLORIDE
  53. VICTOZA [Concomitant]
     Active Substance: LIRAGLUTIDE
  54. COREG [Concomitant]
     Active Substance: CARVEDILOL
  55. CALCIFEDIOL [Concomitant]
     Active Substance: CALCIFEDIOL
  56. MIDAZOLAM [Concomitant]
     Active Substance: MIDAZOLAM
  57. ACETAMINOPHEN [Concomitant]
     Active Substance: ACETAMINOPHEN
  58. LOSARTAN [Concomitant]
     Active Substance: LOSARTAN
  59. QUINAPRIL [Concomitant]
     Active Substance: QUINAPRIL
  60. MAALOX ANTACID [Concomitant]
     Active Substance: ALUMINUM HYDROXIDE\DIMETHICONE\MAGNESIUM HYDROXIDE
  61. ANUCORT-HC [Concomitant]
     Active Substance: HYDROCORTISONE ACETATE
  62. DOXYCYCLINE [Concomitant]
     Active Substance: DOXYCYCLINE
  63. DEBROX [CELECOXIB] [Concomitant]
  64. TERBINAFINE [Concomitant]
     Active Substance: TERBINAFINE
  65. ROCEPHIN [Concomitant]
     Active Substance: CEFTRIAXONE SODIUM
  66. OXYMETAZOLINE HYDROCHLORIDE [Concomitant]
     Active Substance: OXYMETAZOLINE HYDROCHLORIDE
  67. TRAMADOL [Concomitant]
     Active Substance: TRAMADOL
  68. DIPRIVAN [Concomitant]
     Active Substance: PROPOFOL
  69. CEFAZOLIN [Concomitant]
     Active Substance: CEFAZOLIN
  70. IPRATROPIUM [Concomitant]
     Active Substance: IPRATROPIUM
  71. ALBUTEROL SULFATE [Concomitant]
     Active Substance: ALBUTEROL SULFATE
  72. NAROPIN [ROPIVACAINE] [Concomitant]
  73. SUBLIMAZE [Concomitant]
     Active Substance: FENTANYL CITRATE
  74. ZOFRAN [Concomitant]
     Active Substance: ONDANSETRON HYDROCHLORIDE
  75. DILAUDID [Concomitant]
     Active Substance: HYDROMORPHONE HYDROCHLORIDE
  76. LIDOCAINE [Concomitant]
     Active Substance: LIDOCAINE
  77. NORMODYNE [Concomitant]
     Active Substance: LABETALOL HYDROCHLORIDE
  78. MILK OF MAGNESIA [Concomitant]
     Active Substance: MAGNESIUM HYDROXIDE
  79. NALOXONE [Concomitant]
     Active Substance: NALOXONE
  80. MORPHINE [Concomitant]
     Active Substance: MORPHINE
  81. MIRALAX [Concomitant]
     Active Substance: POLYETHYLENE GLYCOL 3350
  82. KLOR-CON [Concomitant]
     Active Substance: POTASSIUM CHLORIDE
  83. ZITHROMAX [Concomitant]
     Active Substance: AZITHROMYCIN DIHYDRATE
  84. BACLOFEN [Concomitant]
     Active Substance: BACLOFEN
  85. VIAGRA [Concomitant]
     Active Substance: SILDENAFIL CITRATE
  86. CIALIS [Concomitant]
     Active Substance: TADALAFIL
  87. BENZONATATE [Concomitant]
     Active Substance: BENZONATATE

REACTIONS (14)
  - End stage renal disease [Not Recovered/Not Resolved]
  - Chronic kidney disease [Not Recovered/Not Resolved]
  - Chronic kidney disease [Not Recovered/Not Resolved]
  - HIV associated nephropathy [Unknown]
  - Acute kidney injury [Recovered/Resolved]
  - Renal failure [Not Recovered/Not Resolved]
  - Tooth loss [Not Recovered/Not Resolved]
  - Bone density decreased [Not Recovered/Not Resolved]
  - Tooth fracture [Unknown]
  - Loss of personal independence in daily activities [Unknown]
  - Emotional distress [Unknown]
  - Anaemia [Unknown]
  - Asthenia [Unknown]
  - Pain [Unknown]

NARRATIVE: CASE EVENT DATE: 20150101
